FAERS Safety Report 20919160 (Version 2)
Quarter: 2022Q2

REPORT INFORMATION
  Report Type: Spontaneous
  Country: DE (occurrence: DE)
  Receive Date: 20220606
  Receipt Date: 20220622
  Transmission Date: 20220721
  Serious: Yes (Other)
  Sender: FDA-Public Use
  Company Number: DE-Merck Healthcare KGaA-9327046

PATIENT
  Sex: Male

DRUGS (1)
  1. REBIF [Suspect]
     Active Substance: INTERFERON BETA-1A
     Indication: Relapsing multiple sclerosis
     Dosage: PREFILLED PEN
     Route: 058
     Dates: start: 202104, end: 202203

REACTIONS (2)
  - Gastrointestinal neuroendocrine carcinoma [Not Recovered/Not Resolved]
  - Small intestine carcinoma [Not Recovered/Not Resolved]
